FAERS Safety Report 18728321 (Version 8)
Quarter: 2022Q3

REPORT INFORMATION
  Report Type: Report from Study
  Country: CO (occurrence: CO)
  Receive Date: 20210111
  Receipt Date: 20220818
  Transmission Date: 20221026
  Serious: Yes (Hospitalization, Other)
  Sender: FDA-Public Use
  Company Number: CO-ABBVIE-20K-036-3618017-00

PATIENT
  Sex: Male
  Weight: 72 kg

DRUGS (9)
  1. HUMIRA [Suspect]
     Active Substance: ADALIMUMAB
     Indication: Ankylosing spondylitis
     Route: 058
     Dates: start: 20120322
  2. HUMIRA [Suspect]
     Active Substance: ADALIMUMAB
     Indication: Ankylosing spondylitis
     Route: 058
     Dates: end: 20210610
  3. HUMIRA [Suspect]
     Active Substance: ADALIMUMAB
     Route: 058
  4. CALCITRIOL [Concomitant]
     Active Substance: CALCITRIOL
     Indication: Ankylosing spondylitis
     Route: 048
     Dates: start: 2012
  5. METHOTREXATE [Concomitant]
     Active Substance: METHOTREXATE
     Indication: Ankylosing spondylitis
     Route: 048
     Dates: start: 2012
  6. ACETAMINOPHEN [Concomitant]
     Active Substance: ACETAMINOPHEN
     Indication: Ankylosing spondylitis
     Route: 048
     Dates: start: 2012
  7. NAPROXEN [Concomitant]
     Active Substance: NAPROXEN
     Indication: Back pain
  8. BUSCAPINA [Concomitant]
     Indication: Product used for unknown indication
  9. SCOPOLAMINE [Concomitant]
     Active Substance: SCOPOLAMINE
     Indication: Product used for unknown indication

REACTIONS (37)
  - Prostatic disorder [Recovering/Resolving]
  - Calculus bladder [Recovering/Resolving]
  - Memory impairment [Not Recovered/Not Resolved]
  - Immunosuppression [Recovering/Resolving]
  - Nephrolithiasis [Recovered/Resolved]
  - Nephrolithiasis [Recovered/Resolved]
  - Cholelithiasis [Recovering/Resolving]
  - Hypothyroidism [Recovering/Resolving]
  - General physical condition abnormal [Unknown]
  - Gastric disorder [Recovering/Resolving]
  - Gastrointestinal disorder [Recovering/Resolving]
  - Immune system disorder [Recovering/Resolving]
  - Muscle rigidity [Not Recovered/Not Resolved]
  - Benign prostatic hyperplasia [Not Recovered/Not Resolved]
  - Intentional product misuse [Unknown]
  - Gastritis [Recovering/Resolving]
  - Adverse food reaction [Unknown]
  - Rheumatoid arthritis [Not Recovered/Not Resolved]
  - Irritable bowel syndrome [Not Recovered/Not Resolved]
  - Renal colic [Recovering/Resolving]
  - Gastrointestinal disorder [Unknown]
  - Stress [Not Recovered/Not Resolved]
  - Muscle tightness [Recovering/Resolving]
  - Insomnia [Not Recovered/Not Resolved]
  - Hypoaesthesia [Not Recovered/Not Resolved]
  - Gastrooesophageal reflux disease [Unknown]
  - Musculoskeletal discomfort [Not Recovered/Not Resolved]
  - Oropharyngeal pain [Recovering/Resolving]
  - Influenza [Recovering/Resolving]
  - Pain [Recovering/Resolving]
  - Ankylosing spondylitis [Recovered/Resolved]
  - Ankylosing spondylitis [Recovering/Resolving]
  - Renal pain [Recovered/Resolved]
  - Renal pain [Recovering/Resolving]
  - Nasopharyngitis [Recovered/Resolved]
  - Irritable bowel syndrome [Recovering/Resolving]
  - Influenza like illness [Recovered/Resolved]

NARRATIVE: CASE EVENT DATE: 20180101
